FAERS Safety Report 16216806 (Version 2)
Quarter: 2019Q2

REPORT INFORMATION
  Report Type: Spontaneous
  Country: CZ (occurrence: CZ)
  Receive Date: 20190419
  Receipt Date: 20190618
  Transmission Date: 20190711
  Serious: Yes (Hospitalization, Other)
  Sender: FDA-Public Use
  Company Number: CZ-ACCORD-122436

PATIENT
  Sex: Male

DRUGS (10)
  1. CAPECITABINE. [Suspect]
     Active Substance: CAPECITABINE
     Indication: RECTAL CANCER
     Dosage: 3-0-3?1500 MG /2 X PER DAY?STRENGTH: 500 MG
     Route: 048
     Dates: start: 201606
  2. FOLINIC ACID [Suspect]
     Active Substance: LEUCOVORIN
     Indication: METASTASES TO LUNG
     Dates: start: 201712
  3. AVASTIN [Concomitant]
     Active Substance: BEVACIZUMAB
     Indication: METASTATIC NEOPLASM
     Dates: start: 201703
  4. PERINDOPRIL/AMLODIPINE [Concomitant]
     Indication: HYPERTENSION
  5. IRINOTECAN [Suspect]
     Active Substance: IRINOTECAN
     Indication: METASTASES TO LUNG
     Dates: start: 201712
  6. ZALTRAP [Suspect]
     Active Substance: ZIV-AFLIBERCEPT
     Indication: METASTASES TO LUNG
     Dates: start: 201712
  7. OXALIPLATIN. [Suspect]
     Active Substance: OXALIPLATIN
     Indication: METASTATIC NEOPLASM
     Dates: start: 201703
  8. FLUOROURACIL. [Suspect]
     Active Substance: FLUOROURACIL
     Indication: METASTASES TO LUNG
     Dates: start: 201712
  9. XELODA [Suspect]
     Active Substance: CAPECITABINE
     Indication: METASTATIC NEOPLASM
     Dates: start: 201703
  10. LONSURF [Concomitant]
     Active Substance: TIPIRACIL HYDROCHLORIDE\TRIFLURIDINE
     Indication: METASTASES TO LUNG
     Dosage: STRENGTH: 20 MG?3-0-3
     Dates: start: 201804

REACTIONS (7)
  - Neuropathy peripheral [Not Recovered/Not Resolved]
  - Diarrhoea [Unknown]
  - Peritonsillar abscess [Unknown]
  - Skin toxicity [Unknown]
  - Dyspepsia [Unknown]
  - Mucosal inflammation [Unknown]
  - Weight decreased [Unknown]

NARRATIVE: CASE EVENT DATE: 201606
